FAERS Safety Report 8296007-7 (Version None)
Quarter: 2012Q2

REPORT INFORMATION
  Report Type: 
  Country: None (occurrence: None)
  Receive Date: 20120418
  Receipt Date: 20120417
  Transmission Date: 20120825
  Serious: No
  Sender: FDA-Public Use
  Company Number: US-B.I. PHARMACEUTICALS,INC./RIDGEFIELD-2012-BP-07289BP

PATIENT
  Sex: Male

DRUGS (17)
  1. PROSCAR [Concomitant]
     Indication: PROSTATOMEGALY
     Dosage: 5 MG
     Route: 048
  2. COQ10 [Concomitant]
     Indication: CARDIAC DISORDER
     Route: 048
  3. LIPITOR [Concomitant]
     Indication: BLOOD CHOLESTEROL INCREASED
     Dosage: 10 MG
     Route: 048
  4. VITAMIN D [Concomitant]
     Indication: PROPHYLAXIS
     Dosage: 6000 U
     Route: 048
  5. FISH OIL [Concomitant]
     Indication: PROPHYLAXIS
     Dosage: 1000 MG
     Route: 048
  6. PRADAXA [Suspect]
     Indication: ATRIAL FIBRILLATION
     Dosage: 300 MG
     Route: 048
     Dates: start: 20120412
  7. MAGNESIUM TAURATE [Suspect]
     Indication: CARDIAC DISORDER
     Dosage: 250 MG
     Route: 048
     Dates: start: 20120410
  8. BENEFIBER [Concomitant]
     Indication: CONSTIPATION
  9. DIGOXIN [Concomitant]
     Indication: ARRHYTHMIA
     Dosage: 0.125 MG
     Route: 048
  10. ISOSORBIDE DINITRATE [Concomitant]
     Indication: CARDIAC DISORDER
     Dosage: 30 MG
     Route: 048
  11. HYDROCHLOROTHIAZIDE [Concomitant]
     Dosage: 25 MG
     Route: 048
  12. LEVOTHYROXINE SODIUM [Concomitant]
     Indication: HYPOTHYROIDISM
     Dosage: 0.075 MG
     Route: 048
  13. MULTI-VITAMIN [Concomitant]
     Indication: PROPHYLAXIS
     Route: 048
  14. COLACE [Concomitant]
     Indication: FAECES HARD
  15. COREG [Concomitant]
     Indication: CARDIAC DISORDER
     Dosage: 6.25 MG
     Route: 048
  16. FLOMAX [Concomitant]
     Indication: PROSTATOMEGALY
     Dosage: 0.4 MG
     Route: 048
     Dates: start: 20101101
  17. PRADAXA [Suspect]
     Dosage: 300 MG
     Route: 048
     Dates: start: 20111101, end: 20120320

REACTIONS (3)
  - SENSATION OF HEAVINESS [None]
  - RASH PRURITIC [None]
  - SCAB [None]
